FAERS Safety Report 6475042-5 (Version None)
Quarter: 2009Q4

REPORT INFORMATION
  Report Type: 
  Country: None (occurrence: None)
  Receive Date: 20091204
  Receipt Date: 20090728
  Transmission Date: 20100525
  Serious: No
  Sender: FDA-Public Use
  Company Number: JP-ELI_LILLY_AND_COMPANY-JP200903002783

PATIENT
  Sex: Male
  Weight: 53 kg

DRUGS (8)
  1. ALIMTA [Suspect]
     Indication: PLEURAL MESOTHELIOMA MALIGNANT
     Dosage: 500 MG/M2, OTHER
     Route: 042
     Dates: start: 20081001, end: 20090305
  2. RANDA [Concomitant]
     Indication: PLEURAL MESOTHELIOMA MALIGNANT
     Dosage: 120 MG, OTHER
     Route: 042
     Dates: start: 20081001, end: 20090305
  3. PANVITAN [Concomitant]
     Dosage: 1 G, DAILY (1/D)
     Route: 048
     Dates: start: 20080916
  4. THYRADIN S [Concomitant]
     Indication: HYPOTHYROIDISM
     Dosage: 50 MG, 2/D
     Route: 048
  5. GASTER D [Concomitant]
     Indication: GASTRITIS
     Dosage: 20 MG, 2/D
     Route: 048
     Dates: start: 20080916
  6. MYSLEE [Concomitant]
     Indication: INSOMNIA
     Dosage: 5 MG, DAILY (1/D)
     Route: 048
  7. DECADRON /00016002/ [Concomitant]
     Indication: PROPHYLAXIS
     Dosage: 8 MG, OTHER
     Route: 042
     Dates: end: 20090305
  8. SEROTONE [Concomitant]
     Indication: PROPHYLAXIS OF NAUSEA AND VOMITING
     Dosage: 10 MG, OTHER
     Route: 042
     Dates: end: 20090305

REACTIONS (3)
  - DYSPNOEA [None]
  - ERYTHEMA [None]
  - PYREXIA [None]
